FAERS Safety Report 5782661-8 (Version None)
Quarter: 2008Q2

REPORT INFORMATION
  Report Type: 
  Country: None (occurrence: None)
  Receive Date: 20080619
  Receipt Date: 20080619
  Transmission Date: 20081010
  Serious: No
  Sender: FDA-Public Use
  Company Number: None

PATIENT
  Age: 28 Year
  Sex: Female
  Weight: 63.5036 kg

DRUGS (1)
  1. HYDROMORPHONE HCL [Suspect]
     Indication: CAESAREAN SECTION
     Dosage: 0.4MG EVERY 10 MINUTES IV
     Route: 042
     Dates: start: 20080608, end: 20080609

REACTIONS (2)
  - HYPERSENSITIVITY [None]
  - PRURITUS [None]
